FAERS Safety Report 7960609-5 (Version None)
Quarter: 2011Q4

REPORT INFORMATION
  Report Type: 
  Country: None (occurrence: None)
  Receive Date: 20111206
  Receipt Date: 20111125
  Transmission Date: 20120403
  Serious: Yes (Hospitalization)
  Sender: FDA-Public Use
  Company Number: JP-MERCK-0606USA02209

PATIENT
  Age: 69 Year
  Sex: Female

DRUGS (11)
  1. SINGULAIR [Suspect]
     Indication: ASTHMA
     Route: 048
     Dates: start: 20060417, end: 20060513
  2. GASLON [Concomitant]
     Indication: GASTROINTESTINAL DISORDER
     Route: 048
     Dates: start: 20060417, end: 20060430
  3. MYSER [Concomitant]
     Indication: DERMATITIS
     Dosage: DAILY DOSAGE UNKNOWN
     Route: 061
     Dates: start: 20060508
  4. PULMICORT [Concomitant]
     Indication: ASTHMA
     Route: 055
     Dates: start: 20060417, end: 20060513
  5. PREDNISOLONE [Concomitant]
     Indication: ASTHMA
     Route: 048
     Dates: start: 20060417, end: 20060430
  6. SINGULAIR [Suspect]
     Route: 048
     Dates: start: 20060417, end: 20060513
  7. CLARITHROMYCIN [Concomitant]
     Route: 065
     Dates: start: 20060417
  8. ZYRTEC [Suspect]
     Indication: HYPERSENSITIVITY
     Route: 048
     Dates: start: 20060508, end: 20060513
  9. NOVAMIN (PROCHLORPERAZINE MESYLATE) [Concomitant]
     Indication: PROPHYLAXIS OF NAUSEA AND VOMITING
     Route: 048
     Dates: start: 20060424, end: 20060430
  10. CODEINE PHOSPHATE [Concomitant]
     Indication: COUGH
     Route: 048
     Dates: start: 20060424, end: 20060430
  11. MAGLAX (MAGNESIUM OXIDE) [Concomitant]
     Indication: CONSTIPATION PROPHYLAXIS
     Route: 048
     Dates: start: 20060424, end: 20060430

REACTIONS (1)
  - STEVENS-JOHNSON SYNDROME [None]
